FAERS Safety Report 17890384 (Version 2)
Quarter: 2020Q2

REPORT INFORMATION
  Report Type: Other
  Country: CA (occurrence: CA)
  Receive Date: 20200612
  Receipt Date: 20200630
  Transmission Date: 20200714
  Serious: Yes (Other)
  Sender: FDA-Public Use
  Company Number: CA-GLENMARK PHARMACEUTICALS-2020GMK048078

PATIENT

DRUGS (9)
  1. CLOZAPINE. [Concomitant]
     Active Substance: CLOZAPINE
     Indication: SCHIZOPHRENIA
     Dosage: 425 MILLIGRAM, QD (EVERY 1 DAYS)
     Route: 065
  2. SODIUM VALPROATE [Concomitant]
     Active Substance: VALPROATE SODIUM
     Indication: SCHIZOPHRENIA
     Dosage: 1000 MILLIGRAM, QD (EVERY 1 DAY)
     Route: 065
  3. FLUOXETINE [Concomitant]
     Active Substance: FLUOXETINE HYDROCHLORIDE
     Indication: OBSESSIVE-COMPULSIVE SYMPTOM
     Dosage: 30 MILLIGRAM, QD (1 EVERY 24 HOURS)
     Route: 065
  4. PROCYCLIDINE HCL [Suspect]
     Active Substance: PROCYCLIDINE HYDROCHLORIDE
     Indication: PRODUCT USED FOR UNKNOWN INDICATION
     Dosage: 10 MILLIGRAM, QD (1 EVERY 24 HOURS)
     Route: 065
  5. FLUOXETINE HCL [Concomitant]
     Active Substance: FLUOXETINE HYDROCHLORIDE
     Indication: OBSESSIVE-COMPULSIVE SYMPTOM
     Dosage: 30 MILLIGRAM, OD (1 EVERY 24 HOURS)
     Route: 065
  6. PROCYCLIDINE [Concomitant]
     Active Substance: PROCYCLIDINE
     Indication: SCHIZOPHRENIA
     Dosage: 10 MILLIGRAM, QD (EVERY 1 DAYS)
     Route: 065
  7. GABAPENTIN. [Suspect]
     Active Substance: GABAPENTIN
     Indication: INSOMNIA
     Dosage: 300 MILLIGRAM, QD (EVERY 1 DAYS)
     Route: 065
  8. CLOZAPINE. [Suspect]
     Active Substance: CLOZAPINE
     Indication: PRODUCT USED FOR UNKNOWN INDICATION
     Dosage: 425 MILLIGRAM, QD (1 EVERY 24 HOURS)
     Route: 065
  9. DIVALPROEX SODIUM. [Suspect]
     Active Substance: DIVALPROEX SODIUM
     Indication: AFFECTIVE DISORDER
     Dosage: 1000 MILLIGRAM, QD (1 EVERY 24 HOURS)
     Route: 065

REACTIONS (8)
  - Off label use [Unknown]
  - Psychotic disorder [Recovered/Resolved]
  - Product use in unapproved indication [Unknown]
  - Tachyphrenia [Recovered/Resolved]
  - Obsessive-compulsive symptom [Recovered/Resolved]
  - Paradoxical drug reaction [Recovered/Resolved]
  - Hallucination, auditory [Recovered/Resolved]
  - Paranoia [Recovered/Resolved]
